FAERS Safety Report 6767423-7 (Version None)
Quarter: 2010Q2

REPORT INFORMATION
  Report Type: 
  Country: None (occurrence: None)
  Receive Date: 20100611
  Receipt Date: 20100611
  Transmission Date: 20101027
  Serious: Yes (Hospitalization, Other)
  Sender: FDA-Public Use
  Company Number: None

PATIENT
  Age: 45 Year
  Sex: Female
  Weight: 85.5 kg

DRUGS (2)
  1. CARBOPLATIN [Suspect]
     Indication: BREAST CANCER
     Dosage: 701 CALVERT FORMULA Q3 WEEKS IV
     Route: 042
     Dates: start: 20100212
  2. CARBOPLATIN [Suspect]
     Indication: BREAST CANCER
     Dosage: 701 CALVERT FORMULA Q3 WEEKS IV
     Route: 042
     Dates: start: 20100305

REACTIONS (4)
  - CONSTIPATION [None]
  - DYSPHAGIA [None]
  - NAUSEA [None]
  - RENAL FAILURE ACUTE [None]
